FAERS Safety Report 25067509 (Version 1)
Quarter: 2025Q1

REPORT INFORMATION
  Report Type: Spontaneous
  Country: US (occurrence: US)
  Receive Date: 20250312
  Receipt Date: 20250312
  Transmission Date: 20250409
  Serious: Yes (Hospitalization)
  Sender: GLAXOSMITHKLINE
  Company Number: US-GLAXOSMITHKLINE INC-US2025028005

PATIENT

DRUGS (1)
  1. BENLYSTA [Suspect]
     Active Substance: BELIMUMAB
     Indication: Product used for unknown indication

REACTIONS (8)
  - Hospitalisation [Unknown]
  - Gastrointestinal disorder [Unknown]
  - Hernia [Unknown]
  - Haemorrhage [Unknown]
  - Epigastric discomfort [Unknown]
  - Dry mouth [Unknown]
  - Feeding disorder [Unknown]
  - Ulcer [Unknown]

NARRATIVE: CASE EVENT DATE: 20250227
